FAERS Safety Report 13379353 (Version 1)
Quarter: 2017Q1

REPORT INFORMATION
  Report Type: Spontaneous
  Country: US (occurrence: US)
  Receive Date: 20170328
  Receipt Date: 20170328
  Transmission Date: 20170429
  Serious: Yes (Other)
  Sender: FDA-Public Use
  Company Number: US-BAUSCH-BL-2017-007758

PATIENT
  Age: 98 Year
  Sex: Male

DRUGS (2)
  1. PROVENGE [Suspect]
     Active Substance: SIPULEUCEL-T
     Indication: PROSTATE CANCER
     Route: 042
     Dates: start: 20170223, end: 20170223
  2. PROVENGE [Suspect]
     Active Substance: SIPULEUCEL-T
     Route: 042
     Dates: start: 20170310, end: 20170310

REACTIONS (3)
  - Extrasystoles [Unknown]
  - Lower respiratory tract infection [Unknown]
  - Wheezing [Unknown]

NARRATIVE: CASE EVENT DATE: 201703
